FAERS Safety Report 14112891 (Version 1)
Quarter: 2017Q4

REPORT INFORMATION
  Report Type: Other
  Country: AU (occurrence: AU)
  Receive Date: 20171022
  Receipt Date: 20171022
  Transmission Date: 20180321
  Serious: Yes (Death)
  Sender: FDA-Public Use
  Company Number: AU-ALSI-201700378

PATIENT
  Age: 80 Year
  Sex: Female

DRUGS (1)
  1. CARBON DIOXIDE. [Suspect]
     Active Substance: CARBON DIOXIDE
     Indication: IMAGING PROCEDURE
     Route: 042
     Dates: start: 20131204, end: 20131204

REACTIONS (4)
  - Air embolism [Fatal]
  - Off label use [Fatal]
  - Medication error [Fatal]
  - Cardiac arrest [Fatal]

NARRATIVE: CASE EVENT DATE: 20131204
